FAERS Safety Report 15017870 (Version 9)
Quarter: 2019Q1

REPORT INFORMATION
  Report Type: Spontaneous
  Country: US (occurrence: US)
  Receive Date: 20180615
  Receipt Date: 20190116
  Transmission Date: 20190417
  Serious: Yes (Hospitalization)
  Sender: FDA-Public Use
  Company Number: US-ACTELION-A-NJ2018-173599

PATIENT
  Age: 33 Year
  Sex: Female
  Weight: 57.14 kg

DRUGS (6)
  1. OPSUMIT [Suspect]
     Active Substance: MACITENTAN
     Indication: PULMONARY ARTERIAL HYPERTENSION
     Dosage: 10 MG, QD
     Route: 048
     Dates: start: 20180512
  2. VELETRI [Suspect]
     Active Substance: EPOPROSTENOL
     Indication: PULMONARY ARTERIAL HYPERTENSION
     Dosage: 12.5 NG/KG, PER MIN
     Route: 042
  3. VELETRI [Suspect]
     Active Substance: EPOPROSTENOL
     Dosage: 10 NG/KG, PER MIN
     Route: 042
  4. VELETRI [Suspect]
     Active Substance: EPOPROSTENOL
     Dosage: 8 NG/KG, PER MIN
     Route: 042
  5. VELETRI [Suspect]
     Active Substance: EPOPROSTENOL
     Dosage: 30 NG/KG, PER MIN
     Route: 042
  6. TYVASO [Concomitant]
     Active Substance: TREPROSTINIL

REACTIONS (20)
  - Catheter site inflammation [Unknown]
  - Swelling face [Unknown]
  - Catheter site vesicles [Not Recovered/Not Resolved]
  - Trismus [Unknown]
  - Catheter site dermatitis [Not Recovered/Not Resolved]
  - Pulmonary arterial hypertension [Unknown]
  - Presyncope [Unknown]
  - Diarrhoea [Unknown]
  - Flushing [Unknown]
  - Catheter site haemorrhage [Unknown]
  - Oedema peripheral [Not Recovered/Not Resolved]
  - Erythema [Unknown]
  - Decreased appetite [Unknown]
  - Headache [Unknown]
  - Catheter site pruritus [Unknown]
  - Pain in extremity [Unknown]
  - Catheter site rash [Not Recovered/Not Resolved]
  - Nausea [Unknown]
  - Peripheral swelling [Unknown]
  - Dyspnoea [Recovering/Resolving]

NARRATIVE: CASE EVENT DATE: 20180522
